FAERS Safety Report 6459956-8 (Version None)
Quarter: 2009Q4

REPORT INFORMATION
  Report Type: 
  Country: None (occurrence: None)
  Receive Date: 20091129
  Receipt Date: 20091116
  Transmission Date: 20100525
  Serious: Yes (Other)
  Sender: FDA-Public Use
  Company Number: PHEH2009US14931

PATIENT
  Sex: Male

DRUGS (6)
  1. EXJADE [Suspect]
     Indication: SERUM FERRITIN INCREASED
     Dosage: 1000 PER DAY
     Route: 048
     Dates: start: 20090810, end: 20090901
  2. PHOSLO [Concomitant]
     Dosage: UNK
  3. DIGOXIN [Concomitant]
  4. MOTRIN [Concomitant]
  5. PROTONIX [Concomitant]
     Dosage: 40 MG, UNK
  6. KEPPRA [Concomitant]
     Dosage: 500 MG, BID

REACTIONS (5)
  - ASPARTATE AMINOTRANSFERASE INCREASED [None]
  - DECREASED APPETITE [None]
  - FATIGUE [None]
  - HEPATIC ENZYME INCREASED [None]
  - LIVER DISORDER [None]
